FAERS Safety Report 4716958-7 (Version None)
Quarter: 2005Q3

REPORT INFORMATION
  Report Type: 
  Country: None (occurrence: None)
  Receive Date: 20050719
  Receipt Date: 20050609
  Transmission Date: 20060218
  Serious: Yes (Life-Threatening, Hospitalization)
  Sender: FDA-Public Use
  Company Number: 2005UW08930

PATIENT
  Age: 15761 Day
  Sex: Male

DRUGS (4)
  1. DIPRIVAN [Suspect]
     Indication: SEDATION
     Dosage: INDUCTION AND MAINTENANCE
     Route: 042
     Dates: start: 20050602, end: 20050609
  2. DIPRIVAN [Suspect]
     Indication: INDUCTION AND MAINTENANCE OF ANAESTHESIA
     Dosage: INDUCTION AND MAINTENANCE
     Route: 042
     Dates: start: 20050602, end: 20050609
  3. HALDOL [Suspect]
     Dates: start: 20050602, end: 20050609
  4. ATIVAN [Suspect]
     Dates: start: 20050602, end: 20050609

REACTIONS (1)
  - DELAYED RECOVERY FROM ANAESTHESIA [None]
